FAERS Safety Report 16285702 (Version 7)
Quarter: 2019Q3

REPORT INFORMATION
  Report Type: Report from Study
  Country: MY (occurrence: MY)
  Receive Date: 20190508
  Receipt Date: 20190712
  Transmission Date: 20191004
  Serious: Yes (Other)
  Sender: FDA-Public Use
  Company Number: PHHY2018MY048340

PATIENT
  Age: 69 Year
  Sex: Male

DRUGS (12)
  1. THYMOL GARGLE [Concomitant]
     Indication: PRODUCT USED FOR UNKNOWN INDICATION
     Dosage: 1 OT, UNK
     Route: 065
     Dates: start: 20180729, end: 20180803
  2. RANITIDINE. [Concomitant]
     Active Substance: RANITIDINE
     Indication: PROPHYLAXIS
     Dosage: 150 OT, UNK
     Route: 048
     Dates: start: 20180729, end: 20180829
  3. AUGMENTIN [Concomitant]
     Active Substance: AMOXICILLIN\CLAVULANATE POTASSIUM
     Indication: PRODUCT USED FOR UNKNOWN INDICATION
     Dosage: 625 OT, UNK
     Route: 048
     Dates: start: 20180729, end: 20180805
  4. SERTRALINE [Concomitant]
     Active Substance: SERTRALINE HYDROCHLORIDE
     Indication: MENTAL DISORDER
     Dosage: 25 OT, UNK
     Route: 048
     Dates: start: 20180516, end: 20180522
  5. VOTRIENT [Suspect]
     Active Substance: PAZOPANIB HYDROCHLORIDE
     Dosage: 200 OT, UNK
     Route: 048
     Dates: end: 20181111
  6. VOTRIENT [Suspect]
     Active Substance: PAZOPANIB HYDROCHLORIDE
     Dosage: 400 OT, UNK
     Route: 048
     Dates: start: 20180621, end: 20180911
  7. SERTRALINE [Concomitant]
     Active Substance: SERTRALINE HYDROCHLORIDE
     Dosage: 50 OT, UNK
     Route: 048
     Dates: start: 20180621, end: 20180721
  8. BISOLVON [Concomitant]
     Active Substance: BROMHEXINE HYDROCHLORIDE
     Indication: PRODUCT USED FOR UNKNOWN INDICATION
     Dosage: 8 OT, UNK
     Route: 048
     Dates: start: 20180729, end: 20180805
  9. BENADRYL [Concomitant]
     Active Substance: DIPHENHYDRAMINE HYDROCHLORIDE
     Indication: PRODUCT USED FOR UNKNOWN INDICATION
     Dosage: 10 OT, UNK
     Route: 048
     Dates: start: 20180729, end: 20180803
  10. DEXAMETHASONE. [Concomitant]
     Active Substance: DEXAMETHASONE
     Indication: INCREASED APPETITE
     Dosage: 0.5 OT, UNK
     Route: 048
     Dates: start: 20180729, end: 20180803
  11. VOTRIENT [Suspect]
     Active Substance: PAZOPANIB HYDROCHLORIDE
     Indication: RENAL CELL CARCINOMA
     Dosage: 400 MG, UNK
     Route: 048
     Dates: start: 20180128, end: 20180526
  12. SERTRALINE [Concomitant]
     Active Substance: SERTRALINE HYDROCHLORIDE
     Dosage: 50 OT, UNK
     Route: 048
     Dates: start: 20180523, end: 20180604

REACTIONS (11)
  - Proteinuria [Not Recovered/Not Resolved]
  - Constipation [Recovered/Resolved]
  - Fungal skin infection [Recovered/Resolved]
  - Hyperkalaemia [Recovered/Resolved]
  - Neck pain [Not Recovered/Not Resolved]
  - Hyponatraemia [Recovered/Resolved]
  - Proteinuria [Recovered/Resolved]
  - Upper respiratory tract infection [Recovered/Resolved]
  - Musculoskeletal pain [Not Recovered/Not Resolved]
  - Acute kidney injury [Recovered/Resolved]
  - Proteinuria [Recovered/Resolved]

NARRATIVE: CASE EVENT DATE: 20180207
